FAERS Safety Report 9870462 (Version 1)
Quarter: 2014Q1

REPORT INFORMATION
  Report Type: Spontaneous
  Country: SE (occurrence: SE)
  Receive Date: 20140205
  Receipt Date: 20140205
  Transmission Date: 20141002
  Serious: Yes (Other)
  Sender: FDA-Public Use
  Company Number: SE-TEVA-460515ISR

PATIENT
  Sex: Female

DRUGS (1)
  1. DOXYFERM [Suspect]
     Indication: LYME DISEASE
     Route: 065

REACTIONS (3)
  - Hepatitis viral [Unknown]
  - Pyrexia [Unknown]
  - Somnolence [Unknown]
